FAERS Safety Report 8085745-7 (Version None)
Quarter: 2012Q1

REPORT INFORMATION
  Report Type: 
  Country: None (occurrence: None)
  Receive Date: 20120128
  Receipt Date: 20110608
  Transmission Date: 20120608
  Serious: No
  Sender: FDA-Public Use
  Company Number: US-ABBOTT-11P-163-0731115-00

PATIENT
  Sex: Female

DRUGS (5)
  1. VITAMIN D WITH CALCIUM [Concomitant]
     Indication: VITAMIN SUPPLEMENTATION
  2. AZATHIOPRINE [Concomitant]
     Indication: CROHN'S DISEASE
  3. PREDNISONE TAB [Concomitant]
     Indication: INFLAMMATION
  4. BIRTH CONTROL NORTEL [Concomitant]
     Indication: PRODUCT USED FOR UNKNOWN INDICATION
  5. HUMIRA [Suspect]
     Indication: CROHN'S DISEASE
     Dosage: DAY ONE
     Route: 058
     Dates: start: 20110526

REACTIONS (6)
  - DEVICE MALFUNCTION [None]
  - PAIN IN EXTREMITY [None]
  - ABDOMINAL PAIN UPPER [None]
  - MUSCLE SPASMS [None]
  - INJECTION SITE PAIN [None]
  - INJECTION SITE HAEMATOMA [None]
